FAERS Safety Report 4654811-8 (Version None)
Quarter: 2005Q2

REPORT INFORMATION
  Report Type: 
  Country: None (occurrence: None)
  Receive Date: 20050505
  Receipt Date: 20050505
  Transmission Date: 20051028
  Serious: Yes (Hospitalization)
  Sender: FDA-Public Use
  Company Number: None

PATIENT
  Age: 42 Year
  Sex: Female
  Weight: 71.2147 kg

DRUGS (3)
  1. TOPAMAX [Suspect]
     Indication: MIGRAINE
     Dosage: ONE TAB   HS    ORAL
     Route: 048
     Dates: start: 20010827, end: 20050504
  2. LIMBITROL [Suspect]
     Indication: INSOMNIA
     Dosage: TWO TAB      HS     ORAL
     Route: 048
     Dates: start: 20010827, end: 20050504
  3. LIMBITROL [Suspect]
     Indication: MIGRAINE
     Dosage: TWO TAB      HS     ORAL
     Route: 048
     Dates: start: 20010827, end: 20050504

REACTIONS (2)
  - ABDOMINAL PAIN LOWER [None]
  - PELVIC PAIN [None]
